FAERS Safety Report 15281724 (Version 1)
Quarter: 2018Q3

REPORT INFORMATION
  Report Type: Spontaneous
  Country: US (occurrence: US)
  Receive Date: 20180731
  Receipt Date: 20180731
  Transmission Date: 20181010
  Serious: Yes (Hospitalization)
  Sender: FDA-Public Use
  Company Number: None

PATIENT
  Sex: Male

DRUGS (6)
  1. FLONASE [Concomitant]
     Active Substance: FLUTICASONE PROPIONATE
  2. TACROLIMUS. [Suspect]
     Active Substance: TACROLIMUS
     Indication: RENAL TRANSPLANT
     Route: 048
  3. GLUCOTROLAM [Concomitant]
  4. TACROLIMUS. [Suspect]
     Active Substance: TACROLIMUS
  5. MYCOPHENOLIC [Suspect]
     Active Substance: MYCOPHENOLIC ACID
  6. AZELASTINA [Concomitant]

REACTIONS (1)
  - Knee arthroplasty [None]
